FAERS Safety Report 13471597 (Version 1)
Quarter: 2017Q2

REPORT INFORMATION
  Report Type: Spontaneous
  Country: US (occurrence: US)
  Receive Date: 20170424
  Receipt Date: 20170424
  Transmission Date: 20170830
  Serious: No
  Sender: FDA-Public Use
  Company Number: US-TEVA-759224ACC

PATIENT
  Age: 62 Year
  Sex: Male

DRUGS (1)
  1. AZILECT [Suspect]
     Active Substance: RASAGILINE MESYLATE
     Route: 065

REACTIONS (9)
  - Somnolence [Unknown]
  - Fall [Unknown]
  - Hypotension [Unknown]
  - Micturition urgency [Unknown]
  - Dyskinesia [Unknown]
  - Constipation [Unknown]
  - Abdominal pain [Unknown]
  - Depression [Unknown]
  - Abnormal dreams [Unknown]
